FAERS Safety Report 8738777 (Version 3)
Quarter: 2013Q1

REPORT INFORMATION
  Report Type: Spontaneous
  Country: US (occurrence: US)
  Receive Date: 20120823
  Receipt Date: 20130103
  Transmission Date: 20140127
  Serious: No
  Sender: FDA-Public Use
  Company Number: US-009507513-1208USA000059

PATIENT
  Sex: Female

DRUGS (9)
  1. TRUSOPT [Suspect]
     Dosage: 2 DF, TID
     Route: 047
     Dates: start: 201101
  2. TIMOLOL MALEATE [Suspect]
     Dosage: UNK, BID
  3. AZITHROMYCIN [Suspect]
  4. LEVOTHYROXINE SODIUM [Concomitant]
  5. PREDNISOLONE [Concomitant]
  6. VIGAMOX [Concomitant]
  7. LANTUS [Concomitant]
  8. LEVODROPROPIZINE [Concomitant]
  9. LUMIGAN [Concomitant]
     Dosage: UNK, QD, OS ONLY
     Route: 047

REACTIONS (8)
  - Vision blurred [Recovered/Resolved]
  - Vitreous detachment [Unknown]
  - Retinal depigmentation [Unknown]
  - Angle closure glaucoma [Unknown]
  - Intraocular lens implant [Unknown]
  - Posterior capsule opacification [Unknown]
  - Cataract [Unknown]
  - Mycoplasma infection [Unknown]
